FAERS Safety Report 4696024-X (Version None)
Quarter: 2005Q3

REPORT INFORMATION
  Report Type: 
  Country: None (occurrence: None)
  Receive Date: 20050620
  Receipt Date: 20050610
  Transmission Date: 20060218
  Serious: Yes (Hospitalization, Other)
  Sender: FDA-Public Use
  Company Number: CHNY2005DE01180

PATIENT
  Sex: Male

DRUGS (1)
  1. SCOPODERM TTS (NCH) (HYSCINE HYDROBROMIDE) TRANS-THERAPEUTIC-SYSTEM [Suspect]
     Indication: SALIVARY HYPERSECRETION
     Dosage: ONE PATCH EVERY SECOND DAY, TRANSDERMAL
     Route: 062
     Dates: start: 20040301, end: 20050601

REACTIONS (6)
  - DRUG INEFFECTIVE [None]
  - EPILEPSY [None]
  - HYPONATRAEMIA [None]
  - INFLAMMATION [None]
  - LUNG DISORDER [None]
  - PULMONARY OEDEMA [None]
